FAERS Safety Report 7466740-5 (Version None)
Quarter: 2011Q2

REPORT INFORMATION
  Report Type: 
  Country: None (occurrence: None)
  Receive Date: 20110509
  Receipt Date: 20100824
  Transmission Date: 20111010
  Serious: No
  Sender: FDA-Public Use
  Company Number: US-ALEXION-A201001071

PATIENT
  Sex: Male

DRUGS (8)
  1. SOLIRIS [Suspect]
     Indication: PAROXYSMAL NOCTURNAL HAEMOGLOBINURIA
     Dosage: 600 MG, UNK
     Route: 042
     Dates: start: 20091007
  2. NAPROXEN (ALEVE) [Concomitant]
     Dosage: UNK
     Route: 048
  3. SOLIRIS [Suspect]
     Dosage: 900 MG, Q3WKS
     Route: 042
     Dates: end: 20100806
  4. SOLIRIS [Suspect]
     Dosage: 900 MG, UNK
     Route: 042
     Dates: start: 20101020
  5. PROTONIX [Concomitant]
     Dosage: 40 MG, PRN
     Route: 048
  6. CYCLOSPORINE [Concomitant]
     Dosage: 100 MG, BID
     Route: 048
  7. MAGNESIUM SULFATE [Concomitant]
     Dosage: 133 MG, BID
     Route: 048
  8. TOPROL-XL [Concomitant]
     Indication: HYPERTENSION
     Dosage: 50 MG, QD
     Route: 048

REACTIONS (6)
  - FATIGUE [None]
  - ABDOMINAL PAIN [None]
  - ASTHENIA [None]
  - HYPOAESTHESIA [None]
  - HAEMORRHAGE URINARY TRACT [None]
  - CHROMATURIA [None]
